FAERS Safety Report 20695814 (Version 2)
Quarter: 2022Q2

REPORT INFORMATION
  Report Type: Report from Study
  Country: CA (occurrence: CA)
  Receive Date: 20220411
  Receipt Date: 20220518
  Transmission Date: 20220721
  Serious: Yes (Other)
  Sender: FDA-Public Use
  Company Number: CA-TAKEDA-2022TUS022375

PATIENT
  Age: 72 Year
  Sex: Female

DRUGS (11)
  1. HUMAN IMMUNOGLOBULIN G [Suspect]
     Active Substance: HUMAN IMMUNOGLOBULIN G
     Indication: Immunodeficiency common variable
     Dosage: 16 GRAM, 1/WEEK
     Route: 050
     Dates: start: 20211230
  2. ATORVASTATIN CALCIUM [Concomitant]
     Active Substance: ATORVASTATIN CALCIUM
     Dosage: 20 MILLIGRAM, QD
     Dates: start: 20210831
  3. SANDOZ PANTOPRAZOL [Concomitant]
     Dosage: 40 MILLIGRAM, BID
     Dates: start: 20210831
  4. MINT FUROSEMIDE [Concomitant]
     Dosage: 40 MILLIGRAM, QD
     Dates: start: 20210831
  5. AMLODIPINE MALEATE [Concomitant]
     Active Substance: AMLODIPINE MALEATE
     Dosage: 5 MILLIGRAM, QD
  6. GABAPENTIN [Concomitant]
     Active Substance: GABAPENTIN
     Dosage: 300 MILLIGRAM, TID
     Dates: start: 20210831
  7. DULOXETINE [Concomitant]
     Active Substance: DULOXETINE
     Dosage: 60 MILLIGRAM, QD
     Dates: start: 20210831
  8. AVENTYL [Concomitant]
     Active Substance: NORTRIPTYLINE HYDROCHLORIDE
     Dosage: 25 MILLIGRAM, QD
     Dates: start: 20210831
  9. ASPIRIN [Concomitant]
     Active Substance: ASPIRIN
     Dosage: 81 MILLIGRAM, QD
     Dates: start: 20180630
  10. MESALAMINE [Concomitant]
     Active Substance: MESALAMINE
  11. BACLOFEN [Concomitant]
     Active Substance: BACLOFEN

REACTIONS (6)
  - Coeliac disease [Not Recovered/Not Resolved]
  - Infection [Not Recovered/Not Resolved]
  - Injection site pain [Recovering/Resolving]
  - Abdominal distension [Not Recovered/Not Resolved]
  - Injection site warmth [Not Recovered/Not Resolved]
  - Injection site erythema [Not Recovered/Not Resolved]

NARRATIVE: CASE EVENT DATE: 20220301
